FAERS Safety Report 9999104 (Version 1)
Quarter: 2014Q1

REPORT INFORMATION
  Report Type: Spontaneous
  Country: ES (occurrence: None)
  Receive Date: 20140310
  Receipt Date: 20140310
  Transmission Date: 20141002
  Serious: Yes (Hospitalization)
  Sender: FDA-Public Use
  Company Number: AE-SPE-2013-033

PATIENT
  Age: 76 Year
  Sex: Male

DRUGS (5)
  1. CEFDITOREN PIVOXIL [Suspect]
     Route: 048
     Dates: start: 201302, end: 20130221
  2. LEXATIN [Suspect]
     Route: 048
  3. ACETYLCYSTEINE [Concomitant]
  4. LANTOPROST [Concomitant]
  5. RILAST TURBOHALER 160 [Concomitant]

REACTIONS (1)
  - Agranulocytosis [None]
